FAERS Safety Report 8539516-5 (Version None)
Quarter: 2012Q3

REPORT INFORMATION
  Report Type: 
  Country: None (occurrence: None)
  Receive Date: 20120726
  Receipt Date: 20120717
  Transmission Date: 20120928
  Serious: Yes (Hospitalization)
  Sender: FDA-Public Use
  Company Number: US-B.I. PHARMACEUTICALS,INC./RIDGEFIELD-2012-BP-15866BP

PATIENT
  Age: 27 Year
  Sex: Male

DRUGS (2)
  1. IPILIMUMAB [Suspect]
     Indication: MALIGNANT MELANOMA
     Route: 042
     Dates: start: 20110705, end: 20110726
  2. DULCOLAX [Suspect]
     Indication: CONSTIPATION

REACTIONS (7)
  - PANCREATITIS [None]
  - DEPRESSION [None]
  - LIPASE INCREASED [None]
  - AMYLASE INCREASED [None]
  - COLITIS [None]
  - LIBIDO DECREASED [None]
  - FLANK PAIN [None]
